FAERS Safety Report 19873424 (Version 1)
Quarter: 2021Q3

REPORT INFORMATION
  Report Type: Spontaneous
  Country: US (occurrence: US)
  Receive Date: 20210923
  Receipt Date: 20210923
  Transmission Date: 20211014
  Serious: No
  Sender: FDA-Public Use
  Company Number: US-SA-2021SA313031

PATIENT
  Age: 71 Year
  Sex: Female

DRUGS (1)
  1. NASACORT ALLERGY 24HR [Suspect]
     Active Substance: TRIAMCINOLONE ACETONIDE
     Indication: DERMATITIS ALLERGIC
     Dosage: DRUG STRUCTURE DOSAGE : 2 SPRAYS/ NARE DRUG INTERVAL DOSAGE : ONCE
     Dates: start: 20210919, end: 20210920

REACTIONS (4)
  - Tachycardia [Unknown]
  - Visual impairment [Unknown]
  - Sunburn [Unknown]
  - Erythema [Unknown]

NARRATIVE: CASE EVENT DATE: 20210919
